FAERS Safety Report 6029245-4 (Version None)
Quarter: 2009Q1

REPORT INFORMATION
  Report Type: 
  Country: None (occurrence: None)
  Receive Date: 20090106
  Receipt Date: 20081217
  Transmission Date: 20090719
  Serious: No
  Sender: FDA-Public Use
  Company Number: US-B.I. PHARMACEUTICALS,INC./RIDGEFIELD-2008-BP-18967BP

PATIENT
  Age: 91 Year
  Sex: Male

DRUGS (2)
  1. FLOMAX [Suspect]
     Indication: POLLAKIURIA
     Dosage: .4MG
     Route: 048
     Dates: start: 20081211, end: 20081212
  2. METOPROLOL [Concomitant]
     Indication: HYPERTENSION
     Dates: start: 19770101

REACTIONS (2)
  - DIZZINESS [None]
  - HYPOTENSION [None]
